FAERS Safety Report 4569443-X (Version None)
Quarter: 2005Q1

REPORT INFORMATION
  Report Type: 
  Country: None (occurrence: None)
  Receive Date: 20050118
  Receipt Date: 20041116
  Transmission Date: 20050727
  Serious: Yes (Other)
  Sender: FDA-Public Use
  Company Number: HQWYE559919NOV04

PATIENT
  Age: 39 Year
  Sex: Male

DRUGS (1)
  1. PREMPRO [Suspect]
     Indication: SELF-MEDICATION
     Dosage: 0.625MG/2.5 MG, ORAL
     Route: 048
     Dates: start: 20030701, end: 20031001

REACTIONS (1)
  - INTENTIONAL MISUSE [None]
